FAERS Safety Report 9056905 (Version 1)
Quarter: 2013Q1

REPORT INFORMATION
  Report Type: Spontaneous
  Country: US (occurrence: US)
  Receive Date: 20130201
  Receipt Date: 20130201
  Transmission Date: 20140127
  Serious: No
  Sender: FDA-Public Use
  Company Number: US-BAYER-2013-010866

PATIENT
  Sex: 0

DRUGS (4)
  1. BAYER GENUINE ASPIRIN ORIGINAL STRENGTH [Suspect]
  2. ALEVE CAPLET/TABLET,MIDOL EXTENDED RELIEF CAPLET [Suspect]
  3. TYLENOL REGULAR STRENGTH [Suspect]
  4. UNSPECIFIED INGREDIENT [Suspect]

REACTIONS (2)
  - Drug ineffective [None]
  - Product quality issue [None]
